FAERS Safety Report 9617125 (Version 2)
Quarter: 2013Q4

REPORT INFORMATION
  Report Type: Spontaneous
  Country: EC (occurrence: EC)
  Receive Date: 20131011
  Receipt Date: 20131108
  Transmission Date: 20140711
  Serious: Yes (Hospitalization)
  Sender: FDA-Public Use
  Company Number: EC-PFIZER INC-2013288031

PATIENT
  Age: 79 Year
  Sex: Female

DRUGS (1)
  1. CELEBREX [Suspect]
     Indication: ARTHRITIS
     Dosage: 200 MG, 1X/DAY
     Route: 048
     Dates: start: 20130205, end: 20130219

REACTIONS (3)
  - Urinary tract infection [Recovered/Resolved]
  - Renal disorder [Recovered/Resolved]
  - Pyrexia [Recovered/Resolved]
